FAERS Safety Report 5087399-0 (Version None)
Quarter: 2006Q3

REPORT INFORMATION
  Report Type: 
  Country: None (occurrence: None)
  Receive Date: 20060822
  Receipt Date: 20060822
  Transmission Date: 20061208
  Serious: No
  Sender: FDA-Public Use
  Company Number: None

PATIENT
  Age: 67 Year
  Sex: Female
  Weight: 63.5036 kg

DRUGS (1)
  1. REVLIMID [Suspect]
     Indication: MULTIPLE MYELOMA
     Dosage: 25MG DAILY FOR 21 DAYS ORAL
     Route: 048

REACTIONS (3)
  - NEUROPATHY PERIPHERAL [None]
  - STOMACH DISCOMFORT [None]
  - TREMOR [None]
